FAERS Safety Report 7624461-X (Version None)
Quarter: 2011Q3

REPORT INFORMATION
  Report Type: 
  Country: None (occurrence: None)
  Receive Date: 20110712
  Receipt Date: 20110705
  Transmission Date: 20111222
  Serious: Yes (Other)
  Sender: FDA-Public Use
  Company Number: 2011SP031353

PATIENT
  Age: 28 Year
  Sex: Male

DRUGS (5)
  1. SAPHRIS [Suspect]
     Indication: BIPOLAR DISORDER
     Dosage: 5 MG, BID;
  2. VALPROIC ACID [Concomitant]
  3. CLONAZEPAM [Concomitant]
  4. ARIPIPRAZOLE [Concomitant]
  5. BUPROPION HCL [Concomitant]

REACTIONS (5)
  - MOOD SWINGS [None]
  - ANGER [None]
  - SUICIDAL IDEATION [None]
  - DEPRESSION [None]
  - IRRITABILITY [None]
